FAERS Safety Report 23879975 (Version 1)
Quarter: 2024Q2

REPORT INFORMATION
  Report Type: Spontaneous
  Country: CN (occurrence: CN)
  Receive Date: 20240521
  Receipt Date: 20240521
  Transmission Date: 20240715
  Serious: Yes (Hospitalization, Other)
  Sender: FDA-Public Use
  Company Number: CN-AMGEN-CHNSP2024098065

PATIENT

DRUGS (1)
  1. BLINATUMOMAB [Suspect]
     Active Substance: BLINATUMOMAB
     Indication: Haematological malignancy
     Dosage: UNK
     Route: 065

REACTIONS (13)
  - COVID-19 [Unknown]
  - Myelosuppression [Unknown]
  - Superinfection fungal [Unknown]
  - Superinfection bacterial [Unknown]
  - Respiratory failure [Unknown]
  - Encephalitis [Unknown]
  - Klebsiella test positive [Unknown]
  - Stenotrophomonas test positive [Unknown]
  - Enterococcus test positive [Unknown]
  - Mycoplasma infection [Unknown]
  - Adverse event [Unknown]
  - Pyrexia [Unknown]
  - Off label use [Unknown]
